FAERS Safety Report 4587488-0 (Version None)
Quarter: 2005Q1

REPORT INFORMATION
  Report Type: 
  Country: None (occurrence: None)
  Receive Date: 20050215
  Receipt Date: 20050202
  Transmission Date: 20050727
  Serious: Yes (Other)
  Sender: FDA-Public Use
  Company Number: 2005025960

PATIENT
  Sex: Male
  Weight: 108.8633 kg

DRUGS (3)
  1. ZOLOFT [Suspect]
     Indication: DEPRESSION
     Dosage: 50 MG (50 MG, 1 IN 1 D), ORAL
     Route: 048
     Dates: start: 19940101
  2. IBUPROFEN [Concomitant]
  3. OMEPRAZOLE MAGNESIUM (OMEPRAZOLE MAGNESIUM) [Concomitant]

REACTIONS (4)
  - ECONOMIC PROBLEM [None]
  - NERVE COMPRESSION [None]
  - PARAESTHESIA [None]
  - TREATMENT NONCOMPLIANCE [None]
